FAERS Safety Report 22590278 (Version 1)
Quarter: 2023Q2

REPORT INFORMATION
  Report Type: Spontaneous
  Country: US (occurrence: None)
  Receive Date: 20230609
  Receipt Date: 20230609
  Transmission Date: 20230721
  Serious: No
  Sender: FDA-Public Use
  Company Number: None

PATIENT
  Age: 70 Year
  Sex: Female

DRUGS (8)
  1. NORTRIPTYLINE HYDROCHLORIDE [Suspect]
     Active Substance: NORTRIPTYLINE HYDROCHLORIDE
     Indication: Neuropathy peripheral
     Dosage: FREQUENCY : AT BEDTIME;?
     Route: 048
  2. HYDROCHLOROTHIAZIDE [Concomitant]
     Active Substance: HYDROCHLOROTHIAZIDE
     Dates: start: 20230525
  3. BACLOFEN [Concomitant]
     Dates: start: 20200817
  4. PREGABALIN [Concomitant]
     Active Substance: PREGABALIN
     Dates: start: 20230209
  5. HYDROCODONE/APAP [Concomitant]
     Dates: start: 20200507
  6. TOPIRAMATE [Concomitant]
     Dates: start: 20200817
  7. EZETIMIBE [Concomitant]
     Active Substance: EZETIMIBE
     Dates: start: 20230307
  8. AMLODIPINE [Concomitant]
     Dates: start: 20230216

REACTIONS (3)
  - Burning sensation [None]
  - Sensory disturbance [None]
  - Somnolence [None]
